FAERS Safety Report 14273856 (Version 1)
Quarter: 2017Q4

REPORT INFORMATION
  Report Type: Spontaneous
  Country: US (occurrence: US)
  Receive Date: 20171211
  Receipt Date: 20171211
  Transmission Date: 20180321
  Serious: Yes (Other)
  Sender: FDA-Public Use
  Company Number: US-OTSUKA-2016_002062

PATIENT
  Sex: Female
  Weight: 136 kg

DRUGS (8)
  1. ASPIRIN. [Suspect]
     Active Substance: ASPIRIN
     Indication: PRODUCT USED FOR UNKNOWN INDICATION
     Dosage: UNK
  2. ABILIFY [Suspect]
     Active Substance: ARIPIPRAZOLE
     Indication: ANXIETY
     Dosage: 5 MG, QD
     Route: 065
     Dates: start: 20111201
  3. ABILIFY [Suspect]
     Active Substance: ARIPIPRAZOLE
     Indication: HALLUCINATION, AUDITORY
     Dosage: 5 MG, BID
     Route: 065
     Dates: start: 20110119, end: 20111201
  4. FLUOXETINE HYDROCHLORIDE. [Concomitant]
     Active Substance: FLUOXETINE HYDROCHLORIDE
     Indication: PRODUCT USED FOR UNKNOWN INDICATION
     Dosage: 10 MG, QD
     Route: 048
  5. ASPIRIN. [Suspect]
     Active Substance: ASPIRIN
     Indication: PRODUCT USED FOR UNKNOWN INDICATION
     Route: 065
  6. ABILIFY [Suspect]
     Active Substance: ARIPIPRAZOLE
     Dosage: 15 MG, QD
     Route: 065
     Dates: start: 20120213
  7. WELLBUTRIN [Concomitant]
     Active Substance: BUPROPION HYDROCHLORIDE
     Indication: PRODUCT USED FOR UNKNOWN INDICATION
     Dosage: UNK
     Route: 065
  8. PROZAC DURAPAC [Concomitant]
     Indication: PRODUCT USED FOR UNKNOWN INDICATION
     Dosage: UNK

REACTIONS (8)
  - Overdose [Unknown]
  - Off label use [Unknown]
  - Gun shot wound [Unknown]
  - Drug ineffective [Unknown]
  - Nightmare [Unknown]
  - Insomnia [Unknown]
  - Weight increased [Unknown]
  - Fear [Unknown]

NARRATIVE: CASE EVENT DATE: 2012
